FAERS Safety Report 9394987 (Version 1)
Quarter: 2013Q3

REPORT INFORMATION
  Report Type: Spontaneous
  Country: FR (occurrence: FR)
  Receive Date: 20130711
  Receipt Date: 20130711
  Transmission Date: 20140515
  Serious: Yes (Death, Hospitalization, Other)
  Sender: FDA-Public Use
  Company Number: FR-PFIZER INC-2013199756

PATIENT
  Age: 91 Year
  Sex: Female

DRUGS (8)
  1. METFORMIN HCL [Suspect]
     Indication: TYPE 2 DIABETES MELLITUS
     Dosage: 850 MG, 2X/DAY
     Route: 048
     Dates: end: 20130618
  2. EFFEXOR LP [Suspect]
     Dosage: 37.5 MG, 1X/DAY
     Route: 048
     Dates: end: 20130618
  3. DIFFU K [Suspect]
     Indication: HYPOKALAEMIA
     Dosage: 600 MG, 1X/DAY
     Route: 048
     Dates: end: 20130618
  4. HYZAAR [Suspect]
     Indication: HYPERTENSION
     Dosage: 1 DF, 1X/DAY
     Route: 048
     Dates: end: 20130618
  5. LASILIX [Suspect]
     Dosage: 40 MG, 1X/DAY
     Route: 048
     Dates: end: 20130618
  6. INEXIUM [Suspect]
     Dosage: 40 MG, 1X/DAY
     Route: 048
     Dates: end: 20130618
  7. PARACETAMOL [Suspect]
     Dosage: UNK
     Route: 048
     Dates: end: 20130618
  8. LANSOYL [Suspect]
     Indication: CONSTIPATION
     Dosage: UNK
     Route: 048
     Dates: end: 20130618

REACTIONS (6)
  - Renal failure acute [Fatal]
  - Lactic acidosis [Fatal]
  - Dehydration [Fatal]
  - Hyperkalaemia [Fatal]
  - Muscle spasms [Fatal]
  - Somnolence [Fatal]
